FAERS Safety Report 10104403 (Version 2)
Quarter: 2014Q3

REPORT INFORMATION
  Report Type: Other
  Country: US (occurrence: US)
  Receive Date: 20140424
  Receipt Date: 20140722
  Transmission Date: 20150326
  Serious: Yes (Hospitalization, Other)
  Sender: FDA-Public Use
  Company Number: US-GSKPPD-2014GSK001328

PATIENT
  Age: 60 Year
  Sex: Male

DRUGS (5)
  1. ALTACE [Concomitant]
     Active Substance: RAMIPRIL
     Dosage: QD
  2. AVANDIA [Suspect]
     Active Substance: ROSIGLITAZONE MALEATE
     Indication: DIABETES MELLITUS
     Dosage: Q.A.M
     Route: 048
     Dates: start: 200102
  3. COREG [Concomitant]
     Active Substance: CARVEDILOL
     Dosage: BID
  4. PLAVIX [Concomitant]
     Active Substance: CLOPIDOGREL BISULFATE
     Dosage: QD
  5. TAMBOCOR [Concomitant]
     Active Substance: FLECAINIDE ACETATE
     Dosage: BID

REACTIONS (1)
  - Myocardial ischaemia [Recovered/Resolved]

NARRATIVE: CASE EVENT DATE: 20030418
